FAERS Safety Report 5752834-9 (Version None)
Quarter: 2008Q2

REPORT INFORMATION
  Report Type: 
  Country: None (occurrence: None)
  Receive Date: 20080529
  Receipt Date: 20080523
  Transmission Date: 20081010
  Serious: Yes (Other)
  Sender: FDA-Public Use
  Company Number: GB-ABBOTT-08P-167-0453438-00

PATIENT
  Age: 61 Year
  Sex: Male
  Weight: 105 kg

DRUGS (3)
  1. CLARITHROMYCIN [Suspect]
     Indication: LOWER RESPIRATORY TRACT INFECTION
     Dates: start: 20080424, end: 20080428
  2. PREDNISOLONE [Concomitant]
     Indication: CHEST PAIN
  3. ACETAMINOPHEN W/ CODEINE [Concomitant]
     Indication: CHEST PAIN

REACTIONS (3)
  - ANXIETY [None]
  - CONFUSIONAL STATE [None]
  - PARANOIA [None]
